FAERS Safety Report 9353993 (Version 1)
Quarter: 2013Q2

REPORT INFORMATION
  Report Type: Spontaneous
  Country: FR (occurrence: FR)
  Receive Date: 20130618
  Receipt Date: 20130618
  Transmission Date: 20140414
  Serious: Yes (Hospitalization)
  Sender: FDA-Public Use
  Company Number: PHHY2013FR061019

PATIENT
  Age: 83 Year
  Sex: Female

DRUGS (4)
  1. TAREG [Suspect]
     Indication: HYPERTENSION
     Dosage: 80 MG, DAILY
     Route: 048
     Dates: start: 20080915
  2. ALPRAZOLAM [Suspect]
     Indication: ANXIETY
     Dosage: 0.125 MG, BID
     Route: 048
     Dates: start: 20130422
  3. REMINYL LP [Suspect]
     Indication: DEMENTIA ALZHEIMER^S TYPE
     Dosage: 16 MG, DAILY
     Route: 048
     Dates: start: 20080919, end: 20130517
  4. DETENSIEL [Suspect]
     Indication: HYPERTENSION
     Dosage: 5 MG, DAILY
     Route: 048
     Dates: start: 20080916

REACTIONS (3)
  - Nervous system disorder [Recovered/Resolved with Sequelae]
  - Gait disturbance [None]
  - Transient ischaemic attack [None]
